FAERS Safety Report 17913680 (Version 1)
Quarter: 2020Q2

REPORT INFORMATION
  Report Type: Spontaneous
  Country: ES (occurrence: ES)
  Receive Date: 20200618
  Receipt Date: 20200618
  Transmission Date: 20200714
  Serious: Yes (Other)
  Sender: FDA-Public Use
  Company Number: ES-SA-2020SA024410

PATIENT

DRUGS (5)
  1. TOUJEO [Concomitant]
     Active Substance: INSULIN GLARGINE
     Dosage: UNK
     Route: 058
  2. APIDRA [Suspect]
     Active Substance: INSULIN GLULISINE
     Indication: TYPE 2 DIABETES MELLITUS
     Dosage: UNK
     Route: 058
  3. LYXUMIA [Suspect]
     Active Substance: LIXISENATIDE
     Indication: TYPE 2 DIABETES MELLITUS
     Dosage: UNK
     Route: 058
     Dates: start: 20200108, end: 20200121
  4. TOUJEO [Concomitant]
     Active Substance: INSULIN GLARGINE
     Indication: TYPE 2 DIABETES MELLITUS
     Dosage: UNK
     Route: 058
  5. LYXUMIA [Suspect]
     Active Substance: LIXISENATIDE
     Dosage: 0-1-0
     Route: 058

REACTIONS (7)
  - Hyperhidrosis [Recovered/Resolved]
  - Fall [Recovered/Resolved]
  - Blindness transient [Recovered/Resolved]
  - Blindness [Unknown]
  - Dizziness [Recovered/Resolved]
  - Discomfort [Recovered/Resolved]
  - Hypoglycaemia [Recovered/Resolved]
